FAERS Safety Report 4811409-6 (Version None)
Quarter: 2005Q4

REPORT INFORMATION
  Report Type: 
  Country: None (occurrence: None)
  Receive Date: 20051026
  Receipt Date: 20051026
  Transmission Date: 20060501
  Serious: Yes (Death)
  Sender: FDA-Public Use
  Company Number: None

PATIENT
  Age: 13 Month
  Sex: Male
  Weight: 9.0719 kg

DRUGS (2)
  1. PHENOBARBITAL [Suspect]
     Indication: CYANOSIS
     Dosage: 75 MG IVP LOAD 40 MG ELIXER QD
     Route: 042
     Dates: start: 20050204, end: 20050213
  2. PHENOBARBITAL [Suspect]
     Indication: FEBRILE CONVULSION
     Dosage: 75 MG IVP LOAD 40 MG ELIXER QD
     Route: 042
     Dates: start: 20050204, end: 20050213

REACTIONS (5)
  - ERYTHEMA [None]
  - LYMPHADENOPATHY [None]
  - PYREXIA [None]
  - STAPHYLOCOCCAL INFECTION [None]
  - TOXIC EPIDERMAL NECROLYSIS [None]
